FAERS Safety Report 9434232 (Version 1)
Quarter: 2013Q3

REPORT INFORMATION
  Report Type: Spontaneous
  Country: US (occurrence: None)
  Receive Date: 20130730
  Receipt Date: 20130730
  Transmission Date: 20140515
  Serious: Yes (Hospitalization)
  Sender: FDA-Public Use
  Company Number: None

PATIENT
  Age: 12 Year
  Sex: Female
  Weight: 32.07 kg

DRUGS (1)
  1. DEPAKOTE SPRINKLES [Suspect]
     Indication: CONVULSION
     Dosage: 500MG  BID  OTHER
     Route: 050
     Dates: start: 20130528, end: 20130707

REACTIONS (3)
  - Lethargy [None]
  - Amylase increased [None]
  - Lipase increased [None]
